FAERS Safety Report 14828995 (Version 1)
Quarter: 2018Q2

REPORT INFORMATION
  Report Type: Spontaneous
  Country: US (occurrence: US)
  Receive Date: 20180430
  Receipt Date: 20180430
  Transmission Date: 20180711
  Serious: Yes (Other)
  Sender: FDA-Public Use
  Company Number: US-TEVA-822527USA

PATIENT
  Sex: Female

DRUGS (2)
  1. ACTIQ [Suspect]
     Active Substance: FENTANYL CITRATE
     Indication: NERVE INJURY
     Route: 065
  2. ACTIQ [Suspect]
     Active Substance: FENTANYL CITRATE
     Indication: BACK PAIN

REACTIONS (11)
  - Bedridden [Unknown]
  - Gait inability [Unknown]
  - Diarrhoea [Unknown]
  - Constipation [Unknown]
  - Tremor [Unknown]
  - Dizziness [Unknown]
  - Hallucination [Unknown]
  - Blood pressure abnormal [Unknown]
  - Pain [Unknown]
  - Product use in unapproved indication [Unknown]
  - Feeling abnormal [Unknown]

NARRATIVE: CASE EVENT DATE: 2003
